FAERS Safety Report 9289199 (Version 1)
Quarter: 2013Q2

REPORT INFORMATION
  Report Type: Spontaneous
  Country: JP (occurrence: JP)
  Receive Date: 20130514
  Receipt Date: 20130514
  Transmission Date: 20140414
  Serious: Yes (Other)
  Sender: FDA-Public Use
  Company Number: JP-SPECTRUM PHARMACEUTICALS, INC.-13-F-JP-00153

PATIENT
  Age: 52 Year
  Sex: Female

DRUGS (2)
  1. FLUOROURACIL [Suspect]
     Indication: OESOPHAGEAL CARCINOMA
     Dosage: UNK
     Route: 065
  2. CDDP [Suspect]
     Indication: OESOPHAGEAL CARCINOMA
     Dosage: UNK
     Route: 065

REACTIONS (6)
  - Encephalopathy [Unknown]
  - Hyponatraemia [Unknown]
  - Renal salt-wasting syndrome [Unknown]
  - Loss of consciousness [Unknown]
  - Speech disorder [Unknown]
  - Muscle spasms [Unknown]
